FAERS Safety Report 8012809-6 (Version None)
Quarter: 2011Q4

REPORT INFORMATION
  Report Type: 
  Country: None (occurrence: None)
  Receive Date: 20111229
  Receipt Date: 20111215
  Transmission Date: 20120403
  Serious: Yes (Hospitalization)
  Sender: FDA-Public Use
  Company Number: TW-BRISTOL-MYERS SQUIBB COMPANY-16319782

PATIENT
  Age: 40 Year
  Sex: Female

DRUGS (4)
  1. ZOLPIDEM [Concomitant]
     Dates: start: 20100407
  2. LAPATINIB [Suspect]
     Indication: BREAST CANCER METASTATIC
     Dosage: 1000MG FROM 13JUL10 CY:4 INTR 4MAY10 AND ON 5MAY REST WITH 1000MG FROM 6MAY10 LAST CY ON 29AP10
     Route: 048
     Dates: start: 20100416
  3. XANAX [Concomitant]
     Dates: start: 20100416
  4. PACLITAXEL [Suspect]
     Indication: BREAST CANCER METASTATIC
     Dosage: 90MG WKLY 13JUL10(CY:4) INT ON 4MY10 LAST DS:29AP10 DOSE REDUC 64 MG/M2 FROM CY DAY1 2(20MY10)
     Route: 042
     Dates: start: 20100416

REACTIONS (5)
  - WHITE BLOOD CELL COUNT DECREASED [None]
  - VOMITING [None]
  - DIARRHOEA [None]
  - FEBRILE NEUTROPENIA [None]
  - GASTRITIS [None]
